FAERS Safety Report 20233018 (Version 1)
Quarter: 2021Q4

REPORT INFORMATION
  Report Type: Spontaneous
  Country: US (occurrence: None)
  Receive Date: 20211225
  Receipt Date: 20211225
  Transmission Date: 20220303
  Serious: Yes (Death, Life-Threatening, Hospitalization, Disabling)
  Sender: FDA-Public Use
  Company Number: None

PATIENT
  Age: 79 Year
  Sex: Male
  Weight: 96.75 kg

DRUGS (1)
  1. MEMANTINE [Suspect]
     Active Substance: MEMANTINE
     Indication: Cognitive disorder
     Dosage: FREQUENCY : TWICE A DAY;?
     Route: 048
     Dates: start: 20211118, end: 20211222

REACTIONS (28)
  - Confusional state [None]
  - Cough [None]
  - Dizziness [None]
  - Headache [None]
  - Asthenia [None]
  - Stupor [None]
  - Weight increased [None]
  - Peripheral swelling [None]
  - Pain in extremity [None]
  - Vision blurred [None]
  - Constipation [None]
  - Agitation [None]
  - Depression [None]
  - Urine output decreased [None]
  - Chromaturia [None]
  - Lethargy [None]
  - Swelling face [None]
  - Speech disorder [None]
  - Gait disturbance [None]
  - Dyspnoea [None]
  - Muscle twitching [None]
  - Stereotypy [None]
  - Dysuria [None]
  - Hyperventilation [None]
  - Insomnia [None]
  - Restlessness [None]
  - Deep vein thrombosis [None]
  - Pulmonary embolism [None]

NARRATIVE: CASE EVENT DATE: 20211213
